FAERS Safety Report 24873215 (Version 1)
Quarter: 2025Q1

REPORT INFORMATION
  Report Type: Spontaneous
  Country: CA (occurrence: CA)
  Receive Date: 20250122
  Receipt Date: 20250122
  Transmission Date: 20250409
  Serious: Yes (Life-Threatening, Other)
  Sender: SANDOZ
  Company Number: CA-SANDOZ-SDZ2025CA003625

PATIENT
  Age: 55 Year
  Sex: Female

DRUGS (6)
  1. BAZEDOXIFENE ACETATE\ESTROGENS, CONJUGATED [Suspect]
     Active Substance: BAZEDOXIFENE ACETATE\ESTROGENS, CONJUGATED
     Indication: Hormone replacement therapy
     Dosage: 1 DF, QD
     Route: 048
     Dates: start: 202403, end: 20241103
  2. ESTRADIOL [Suspect]
     Active Substance: ESTRADIOL
     Indication: Hormone replacement therapy
     Route: 065
     Dates: end: 2024
  3. ESTRADIOL [Suspect]
     Active Substance: ESTRADIOL
     Route: 065
     Dates: start: 2024
  4. ESTROGENS [Suspect]
     Active Substance: ESTROGENS
     Indication: Hormone replacement therapy
     Route: 065
     Dates: end: 2024
  5. PROGESTERONE [Suspect]
     Active Substance: PROGESTERONE
     Indication: Hormone replacement therapy
     Route: 065
     Dates: end: 2024
  6. PROGESTERONE [Suspect]
     Active Substance: PROGESTERONE
     Route: 065
     Dates: start: 2024

REACTIONS (12)
  - Suicidal ideation [Recovered/Resolved]
  - Hypoacusis [Unknown]
  - Chromaturia [Recovered/Resolved]
  - Hot flush [Not Recovered/Not Resolved]
  - Psychiatric symptom [Recovered/Resolved]
  - Muscle spasms [Recovered/Resolved]
  - Abdominal pain upper [Recovered/Resolved]
  - Vaginal haemorrhage [Recovered/Resolved]
  - Hyperhidrosis [Recovered/Resolved]
  - Depression [Recovered/Resolved]
  - Headache [Recovered/Resolved]
  - Product substitution issue [Unknown]

NARRATIVE: CASE EVENT DATE: 20240101
